FAERS Safety Report 14871946 (Version 1)
Quarter: 2018Q2

REPORT INFORMATION
  Report Type: Spontaneous
  Country: BG (occurrence: BG)
  Receive Date: 20180509
  Receipt Date: 20180509
  Transmission Date: 20180711
  Serious: Yes (Death)
  Sender: FDA-Public Use
  Company Number: BG-ROCHE-2116836

PATIENT
  Age: 2 Year
  Sex: Female

DRUGS (5)
  1. OSELTAMIVIR [Suspect]
     Active Substance: OSELTAMIVIR
     Indication: INFLUENZA
     Route: 065
  2. ACICLOVIR [Suspect]
     Active Substance: ACYCLOVIR
     Indication: INFLUENZA
     Route: 065
  3. MANNITOL. [Suspect]
     Active Substance: MANNITOL
     Indication: INFLUENZA
     Route: 065
  4. DEXAMETHASONE. [Suspect]
     Active Substance: DEXAMETHASONE
     Indication: INFLUENZA
     Route: 065
  5. FURANTHRIL [Suspect]
     Active Substance: FUROSEMIDE
     Indication: INFLUENZA
     Route: 065

REACTIONS (1)
  - Coma [Fatal]

NARRATIVE: CASE EVENT DATE: 2016
